FAERS Safety Report 7762657-7 (Version None)
Quarter: 2011Q3

REPORT INFORMATION
  Report Type: 
  Country: None (occurrence: None)
  Receive Date: 20110920
  Receipt Date: 20110907
  Transmission Date: 20111222
  Serious: Yes (Hospitalization)
  Sender: FDA-Public Use
  Company Number: US-JNJFOC-20110903701

PATIENT
  Age: 57 Year
  Sex: Male

DRUGS (1)
  1. CALCIUM CARBONATE [Suspect]
     Indication: GASTROOESOPHAGEAL REFLUX DISEASE
     Dosage: 2-3 GRAMS DAILY
     Route: 048
     Dates: start: 20010101

REACTIONS (4)
  - INCORRECT DRUG ADMINISTRATION DURATION [None]
  - RENAL FAILURE ACUTE [None]
  - MILK-ALKALI SYNDROME [None]
  - GRAND MAL CONVULSION [None]
